FAERS Safety Report 21601494 (Version 1)
Quarter: 2022Q4

REPORT INFORMATION
  Report Type: Spontaneous
  Country: BW (occurrence: BW)
  Receive Date: 20221116
  Receipt Date: 20221116
  Transmission Date: 20230112
  Serious: Yes (Hospitalization, Other)
  Sender: FDA-Public Use
  Company Number: BW-002147023-NVSC2022BW255286

PATIENT
  Age: 15 Year
  Sex: Male

DRUGS (3)
  1. IMATINIB [Suspect]
     Active Substance: IMATINIB
     Indication: Chronic myeloid leukaemia
     Dosage: 400 MG (5 DAYS A WEEK)
     Route: 048
     Dates: start: 20210509, end: 20220425
  2. NILOTINIB [Suspect]
     Active Substance: NILOTINIB
     Indication: Chronic myeloid leukaemia
     Dosage: 400 MG, BID
     Route: 048
     Dates: start: 20220325
  3. NILOTINIB [Suspect]
     Active Substance: NILOTINIB
     Dosage: 400 MG, QD
     Route: 048

REACTIONS (3)
  - Splenomegaly [Recovering/Resolving]
  - Anaemia [Recovering/Resolving]
  - Drug ineffective [Recovering/Resolving]
